FAERS Safety Report 17839649 (Version 1)
Quarter: 2020Q2

REPORT INFORMATION
  Report Type: Spontaneous
  Country: US (occurrence: US)
  Receive Date: 20200528
  Receipt Date: 20200528
  Transmission Date: 20200714
  Serious: No
  Sender: FDA-Public Use
  Company Number: None

PATIENT
  Age: 50 Year
  Sex: Male

DRUGS (1)
  1. STRIBILD [Suspect]
     Active Substance: COBICISTAT\ELVITEGRAVIR\EMTRICITABINE\TENOFOVIR DISOPROXIL FUMARATE
     Dosage: ?          OTHER DOSE:150-150-200-300MG;?
     Route: 048
     Dates: start: 201907

REACTIONS (3)
  - Expired product administered [None]
  - Bone pain [None]
  - Osteopenia [None]

NARRATIVE: CASE EVENT DATE: 20200528
